FAERS Safety Report 7263310-9 (Version None)
Quarter: 2011Q1

REPORT INFORMATION
  Report Type: 
  Country: None (occurrence: None)
  Receive Date: 20110130
  Receipt Date: 20101025
  Transmission Date: 20110831
  Serious: Yes (Other)
  Sender: FDA-Public Use
  Company Number: US-ABBOTT-10P-163-0673333-00

PATIENT
  Sex: Female
  Weight: 90.8 kg

DRUGS (4)
  1. ASPIRIN [Concomitant]
     Indication: THROMBOSIS
  2. HUMIRA [Suspect]
     Indication: PSORIASIS
     Dates: start: 20100801
  3. METFORMIN [Concomitant]
     Indication: DIABETES MELLITUS
  4. VENTOLIN [Concomitant]
     Indication: ASTHMA
     Route: 055

REACTIONS (1)
  - RECURRENT CANCER [None]
